FAERS Safety Report 7031642-5 (Version None)
Quarter: 2010Q4

REPORT INFORMATION
  Report Type: 
  Country: None (occurrence: None)
  Receive Date: 20101006
  Receipt Date: 20101006
  Transmission Date: 20110411
  Serious: Yes (Life-Threatening)
  Sender: FDA-Public Use
  Company Number: None

PATIENT
  Age: 56 Year
  Sex: Male

DRUGS (5)
  1. GEODON [Suspect]
     Indication: BIPOLAR DISORDER
     Dosage: 80MG
     Dates: start: 20100413, end: 20100501
  2. GEODON [Suspect]
     Indication: DEPRESSION
     Dosage: 80MG
     Dates: start: 20100413, end: 20100501
  3. GEODON [Suspect]
     Indication: RENAL DISORDER
     Dosage: 80MG
     Dates: start: 20100413, end: 20100501
  4. LEVOTHYROXINE [Concomitant]
  5. NEXIUM [Concomitant]

REACTIONS (6)
  - ABDOMINAL PAIN [None]
  - DECREASED APPETITE [None]
  - DIARRHOEA [None]
  - RENAL DISORDER [None]
  - VOMITING [None]
  - WEIGHT DECREASED [None]
